FAERS Safety Report 8227246-9 (Version None)
Quarter: 2012Q1

REPORT INFORMATION
  Report Type: 
  Country: None (occurrence: None)
  Receive Date: 20120322
  Receipt Date: 20120320
  Transmission Date: 20120608
  Serious: Yes (Death, Hospitalization)
  Sender: FDA-Public Use
  Company Number: US-B.I. PHARMACEUTICALS,INC./RIDGEFIELD-2012-BP-01264BP

PATIENT
  Age: 52 Year
  Sex: Male

DRUGS (6)
  1. PRADAXA [Suspect]
     Indication: ATRIAL FIBRILLATION
     Dosage: 300 MG
     Route: 048
     Dates: start: 20111128
  2. ALDACTONE [Concomitant]
     Indication: CARDIAC FAILURE CONGESTIVE
  3. MAGNESIUM [Concomitant]
     Indication: SUPPLEMENTATION THERAPY
  4. POTASSIUM [Concomitant]
     Indication: SUPPLEMENTATION THERAPY
  5. METOLAZONE [Concomitant]
     Indication: CARDIAC FAILURE CONGESTIVE
  6. PRADAXA [Suspect]
     Dosage: 300 MG
     Route: 048
     Dates: end: 20120101

REACTIONS (5)
  - CARDIAC FAILURE CONGESTIVE [None]
  - EPISTAXIS [None]
  - RENAL FAILURE [None]
  - GASTROINTESTINAL HAEMORRHAGE [None]
  - HEPATIC FAILURE [None]
